FAERS Safety Report 5528966-7 (Version None)
Quarter: 2007Q4

REPORT INFORMATION
  Report Type: 
  Country: None (occurrence: None)
  Receive Date: 20071129
  Receipt Date: 20071119
  Transmission Date: 20080405
  Serious: Yes (Other)
  Sender: FDA-Public Use
  Company Number: US-AMGEN-STX253330

PATIENT
  Sex: Female

DRUGS (2)
  1. ENBREL [Suspect]
     Indication: RHEUMATOID ARTHRITIS
     Route: 058
     Dates: start: 20001201
  2. METHOTREXATE [Concomitant]
     Route: 048
     Dates: start: 20001201

REACTIONS (8)
  - ABDOMINAL PAIN [None]
  - BACK PAIN [None]
  - BLOOD URINE PRESENT [None]
  - COUGH [None]
  - NASAL CONGESTION [None]
  - NEPHROLITHIASIS [None]
  - PHARYNGOLARYNGEAL PAIN [None]
  - PULMONARY CONGESTION [None]
